FAERS Safety Report 16294982 (Version 1)
Quarter: 2019Q2

REPORT INFORMATION
  Report Type: Spontaneous
  Country: US (occurrence: US)
  Receive Date: 20190509
  Receipt Date: 20190509
  Transmission Date: 20190711
  Serious: No
  Sender: FDA-Public Use
  Company Number: US-ROCHE-2210927

PATIENT
  Sex: Female

DRUGS (7)
  1. ESBRIET [Suspect]
     Active Substance: PIRFENIDONE
     Indication: IDIOPATHIC PULMONARY FIBROSIS
     Route: 065
  2. HYDROCHLOROTHIAZID [Concomitant]
     Active Substance: HYDROCHLOROTHIAZIDE
     Route: 065
  3. LEVOTHYROXIN [Concomitant]
     Active Substance: LEVOTHYROXINE
     Route: 065
  4. AMLODIPINE BENZENESULFONATE [Concomitant]
     Route: 065
  5. METFORMIN HYDROCHLORIDE. [Concomitant]
     Active Substance: METFORMIN HYDROCHLORIDE
     Route: 065
  6. PRAVACHOL [Concomitant]
     Active Substance: PRAVASTATIN SODIUM
     Route: 065
  7. TRANDOLAPRIL. [Concomitant]
     Active Substance: TRANDOLAPRIL
     Route: 065

REACTIONS (1)
  - Photosensitivity reaction [Not Recovered/Not Resolved]
